FAERS Safety Report 9019592 (Version 1)
Quarter: 2013Q1

REPORT INFORMATION
  Report Type: Spontaneous
  Country: US (occurrence: US)
  Receive Date: 20130118
  Receipt Date: 20130118
  Transmission Date: 20140127
  Serious: Yes (Death)
  Sender: FDA-Public Use
  Company Number: US-SHIONOGI, INC-2013000066

PATIENT
  Age: 64 Year
  Sex: Female

DRUGS (21)
  1. NITROFURANTOIN [Suspect]
     Dosage: UNK
  2. NAPROXEN [Suspect]
     Dosage: UNK
  3. DESIPRAMINE HCL [Suspect]
     Dosage: UNK
  4. DILTIAZEM XR [Suspect]
     Dosage: UNK
  5. VENLAFAXINE [Suspect]
     Dosage: UNK
  6. LAMOTRIGINE [Suspect]
     Dosage: UNK
  7. HYDROCHLOROTHIAZIDE [Suspect]
     Dosage: UNK
  8. ARMODAFINIL [Suspect]
     Dosage: UNK
  9. POTASSIUM CHLORIDE [Suspect]
     Dosage: UNK
  10. TRIFLUOPERAZINE [Suspect]
     Dosage: UNK
  11. ESCITALOPRAM [Suspect]
     Dosage: UNK
  12. THYROID PREPARATIONS [Suspect]
     Dosage: UNK
  13. PANTOPRAZOLE [Suspect]
     Dosage: UNK
  14. LANSOPRAZOLE [Suspect]
     Dosage: UNK
  15. ROSUVASTATIN [Suspect]
     Dosage: UNK
  16. DICLOFENAC POTASSIUM [Suspect]
     Dosage: UNK
  17. HYDROCODONE/ACETAMINOPHEN [Suspect]
     Dosage: UNK
  18. PROPOXYPHENE HCL AND ACETAMINOPHEN [Suspect]
     Dosage: UNK
  19. SOLIFENACIN [Suspect]
     Dosage: UNK
  20. CIPROFLOXACIN [Suspect]
     Dosage: UNK
  21. PROGESTINE [Suspect]
     Dosage: UNK

REACTIONS (1)
  - Completed suicide [Fatal]
